FAERS Safety Report 6170420-6 (Version None)
Quarter: 2009Q2

REPORT INFORMATION
  Report Type: 
  Country: None (occurrence: None)
  Receive Date: 20090428
  Receipt Date: 20090421
  Transmission Date: 20091009
  Serious: Yes (Death, Life-Threatening, Other)
  Sender: FDA-Public Use
  Company Number: US-ELI_LILLY_AND_COMPANY-US200904004586

PATIENT
  Sex: Male

DRUGS (2)
  1. HUMULIN 70/30 [Suspect]
     Indication: BLOOD GLUCOSE INCREASED
     Dosage: UNK, UNK
     Dates: start: 20090407
  2. GLYBURIDE [Concomitant]
     Indication: DIABETES MELLITUS
     Dosage: 5 MG, DAILY (1/D)
     Dates: end: 20090407

REACTIONS (7)
  - AGITATION [None]
  - ANGER [None]
  - APPARENT DEATH [None]
  - BLOOD GLUCOSE INCREASED [None]
  - DEMENTIA ALZHEIMER'S TYPE [None]
  - HEART RATE DECREASED [None]
  - PNEUMONIA [None]
